FAERS Safety Report 18210215 (Version 1)
Quarter: 2020Q3

REPORT INFORMATION
  Report Type: Spontaneous
  Country: ES (occurrence: ES)
  Receive Date: 20200829
  Receipt Date: 20200829
  Transmission Date: 20201103
  Serious: Yes (Other)
  Sender: FDA-Public Use
  Company Number: NVSC2020ES235106

PATIENT
  Age: 61 Year
  Sex: Male

DRUGS (2)
  1. CEFTRIAXONE. [Suspect]
     Active Substance: CEFTRIAXONE
     Indication: PROSTATITIS
     Dosage: 2 G, Q24H (2G/24H)
     Route: 042
     Dates: start: 20191127, end: 20191202
  2. PARACETAMOL [Suspect]
     Active Substance: ACETAMINOPHEN
     Indication: PROSTATITIS
     Dosage: UNK (1G/8H)
     Route: 042
     Dates: start: 20191127, end: 20191201

REACTIONS (1)
  - Hepatocellular injury [Recovered/Resolved]

NARRATIVE: CASE EVENT DATE: 20191202
